FAERS Safety Report 24190588 (Version 1)
Quarter: 2024Q3

REPORT INFORMATION
  Report Type: Spontaneous
  Country: US (occurrence: None)
  Receive Date: 20240808
  Receipt Date: 20240808
  Transmission Date: 20241017
  Serious: Yes (Other)
  Sender: Public
  Company Number: None

PATIENT
  Age: 44 Year
  Sex: Female

DRUGS (13)
  1. KESIMPTA [Suspect]
     Active Substance: OFATUMUMAB
     Indication: Multiple sclerosis
     Dates: start: 20230710
  2. PANTOPRAZOLE SODIUM [Concomitant]
     Active Substance: PANTOPRAZOLE SODIUM
  3. WEGOVY [Concomitant]
     Active Substance: SEMAGLUTIDE
  4. AMLODIPINE BESYLATE [Concomitant]
     Active Substance: AMLODIPINE BESYLATE
  5. BACLOFEN [Concomitant]
     Active Substance: BACLOFEN
  6. carisoprodol 325 mg [Concomitant]
  7. CLONIDINE [Concomitant]
     Active Substance: CLONIDINE
  8. d-amphetamine salt combo 10 mg [Concomitant]
  9. gabapetin, 300 mg [Concomitant]
  10. HCTZ 25 mg [Concomitant]
  11. ibuprofen 80 mg [Concomitant]
  12. LISINOPRIL [Concomitant]
     Active Substance: LISINOPRIL
  13. Vit D2 500000 IU [Concomitant]

REACTIONS (2)
  - Pollakiuria [None]
  - Urinary hesitation [None]

NARRATIVE: CASE EVENT DATE: 20230715
